FAERS Safety Report 18045845 (Version 1)
Quarter: 2020Q3

REPORT INFORMATION
  Report Type: Spontaneous
  Country: US (occurrence: US)
  Receive Date: 20200720
  Receipt Date: 20200720
  Transmission Date: 20201103
  Serious: Yes (Other)
  Sender: FDA-Public Use
  Company Number: US-MYLANLABS-2020M1065326

PATIENT
  Age: 65 Year
  Sex: Female

DRUGS (10)
  1. VORICONAZOLE. [Suspect]
     Active Substance: VORICONAZOLE
     Indication: ASPERGILLUS INFECTION
     Dosage: 400 MG  BID, GIVEN WITH AMPHOTERICIN B LIPOSOMAL
     Route: 042
  2. AMPHOTERICIN?B [Concomitant]
     Active Substance: AMPHOTERICIN B
     Indication: ASPERGILLUS INFECTION
  3. VORICONAZOLE. [Suspect]
     Active Substance: VORICONAZOLE
     Indication: OSTEOMYELITIS
     Dosage: 200 MG, BID, LATER INCREASED TO 400MG DUE TO SUB?THERAPEUTIC LEVELS
     Route: 048
  4. ISAVUCONAZOLE [Concomitant]
     Active Substance: ISAVUCONAZOLE
     Indication: OSTEOMYELITIS
     Dosage: 372 MILLIGRAM, Q8H FIRST 4 DOSES, FOLLOWED BY DAILY DOSES
     Route: 048
  5. MICAFUNGIN. [Concomitant]
     Active Substance: MICAFUNGIN SODIUM
     Indication: ASPERGILLUS INFECTION
  6. AMPHOTERICIN?B [Concomitant]
     Active Substance: AMPHOTERICIN B
     Indication: OSTEOMYELITIS
     Dosage: 400 MILLIGRAM, QD
     Route: 042
  7. ISAVUCONAZOLE [Concomitant]
     Active Substance: ISAVUCONAZOLE
     Indication: ASPERGILLUS INFECTION
     Dosage: 372 MILLIGRAM, QD
     Route: 048
  8. VORICONAZOLE. [Suspect]
     Active Substance: VORICONAZOLE
     Indication: ASPERGILLUS INFECTION
     Dosage: 400 MILLIGRAM, BID
     Route: 048
  9. VORICONAZOLE. [Suspect]
     Active Substance: VORICONAZOLE
     Indication: OSTEOMYELITIS
     Dosage: UNKNOWN LOADING DOSE
     Route: 042
  10. MICAFUNGIN. [Concomitant]
     Active Substance: MICAFUNGIN SODIUM
     Indication: OSTEOMYELITIS
     Dosage: 100 MILLIGRAM, QD
     Route: 042

REACTIONS (5)
  - Metabolic encephalopathy [Unknown]
  - Decreased appetite [Unknown]
  - Malnutrition [Unknown]
  - Nausea [Unknown]
  - Product dose omission issue [Unknown]
